FAERS Safety Report 16163631 (Version 1)
Quarter: 2019Q2

REPORT INFORMATION
  Report Type: Spontaneous
  Country: US (occurrence: US)
  Receive Date: 20190304
  Receipt Date: 20190304
  Transmission Date: 20190711
  Serious: Yes (Hospitalization)
  Sender: FDA-Public Use
  Company Number: None

PATIENT
  Age: 60 Year
  Sex: Female

DRUGS (9)
  1. VENLAFAXINE [Concomitant]
     Active Substance: VENLAFAXINE HYDROCHLORIDE
  2. FEROSUL [Concomitant]
  3. TRAMADOL. [Concomitant]
     Active Substance: TRAMADOL
  4. CELECOXIB. [Concomitant]
     Active Substance: CELECOXIB
  5. PAROXETINE. [Concomitant]
     Active Substance: PAROXETINE
  6. ENBREL [Suspect]
     Active Substance: ETANERCEPT
     Indication: RHEUMATOID ARTHRITIS
     Dosage: ?          OTHER FREQUENCY:50MG QW;?
     Route: 058
     Dates: start: 20171107
  7. OMEPRAZOLE. [Concomitant]
     Active Substance: OMEPRAZOLE
  8. PROCTOZONE [Concomitant]
     Active Substance: HYDROCORTISONE
  9. PREDNISONE. [Concomitant]
     Active Substance: PREDNISONE

REACTIONS (2)
  - Therapy cessation [None]
  - Knee operation [None]

NARRATIVE: CASE EVENT DATE: 20190101
